FAERS Safety Report 8957843 (Version 2)
Quarter: 2013Q1

REPORT INFORMATION
  Report Type: Spontaneous
  Country: JP (occurrence: JP)
  Receive Date: 20121210
  Receipt Date: 20130102
  Transmission Date: 20140127
  Serious: Yes (Life-Threatening, Hospitalization, Other)
  Sender: FDA-Public Use
  Company Number: JP-PFIZER INC-2012303785

PATIENT
  Age: 71 Year
  Sex: Male
  Weight: 60.5 kg

DRUGS (2)
  1. ZITHROMAC [Suspect]
     Indication: PERIODONTITIS
     Dosage: 500 MG, 1X/DAY
     Route: 048
     Dates: start: 20121027, end: 20121027
  2. CALONAL [Concomitant]
     Indication: PERIODONTITIS
     Dosage: 400 MG, 1X/DAY
     Route: 048
     Dates: start: 20121027, end: 20121027

REACTIONS (2)
  - Leukopenia [Recovered/Resolved]
  - Sepsis [Recovered/Resolved]
